FAERS Safety Report 5303403-6 (Version None)
Quarter: 2007Q2

REPORT INFORMATION
  Report Type: 
  Country: None (occurrence: None)
  Receive Date: 20070420
  Receipt Date: 20070409
  Transmission Date: 20071010
  Serious: Yes (Other)
  Sender: FDA-Public Use
  Company Number: BR-ROCHE-492377

PATIENT
  Age: 19 Year
  Sex: Female
  Weight: 45 kg

DRUGS (2)
  1. ISOTRETINOIN [Suspect]
     Indication: ACNE
     Route: 048
     Dates: start: 20070115, end: 20070326
  2. DIAZEPAM [Suspect]
     Indication: DRUG USE FOR UNKNOWN INDICATION
     Route: 048
     Dates: start: 20070326, end: 20070326

REACTIONS (3)
  - NO ADVERSE EFFECT [None]
  - OVERDOSE [None]
  - SUICIDE ATTEMPT [None]
